FAERS Safety Report 5866480-X (Version None)
Quarter: 2008Q3

REPORT INFORMATION
  Report Type: 
  Country: None (occurrence: None)
  Receive Date: 20080902
  Receipt Date: 20080902
  Transmission Date: 20090109
  Serious: Yes (Hospitalization)
  Sender: FDA-Public Use
  Company Number: PHEH1995US03637

PATIENT
  Sex: Female
  Weight: 63.5 kg

DRUGS (9)
  1. SANDIMMUNE [Suspect]
     Route: 048
     Dates: start: 19950310
  2. PEPCID [Concomitant]
  3. PREDNISONE TAB [Concomitant]
  4. IMURAN [Concomitant]
  5. ACYCLOVIR [Concomitant]
  6. ASPIRIN [Concomitant]
  7. MYCELEX [Concomitant]
  8. HUMULIN R [Concomitant]
  9. TYLOX [Concomitant]

REACTIONS (4)
  - CYTOMEGALOVIRUS INFECTION [None]
  - HYPERGLYCAEMIA [None]
  - MALAISE [None]
  - PYREXIA [None]
